FAERS Safety Report 10730123 (Version 1)
Quarter: 2015Q1

REPORT INFORMATION
  Report Type: Report from Study
  Country: BR (occurrence: BR)
  Receive Date: 20150122
  Receipt Date: 20150122
  Transmission Date: 20150721
  Serious: Yes (Other)
  Sender: FDA-Public Use
  Company Number: BR-BAYER-2014-124067

PATIENT
  Age: 50 Year
  Sex: Male
  Weight: 73 kg

DRUGS (4)
  1. NEXAVAR [Suspect]
     Active Substance: SORAFENIB
     Indication: HEPATIC CANCER
     Dosage: 1 DF, BID
     Route: 048
     Dates: start: 201402
  2. INSULIN [Concomitant]
     Active Substance: INSULIN NOS
     Indication: DIABETES MELLITUS
     Dosage: 10 MG, QD
     Route: 058
     Dates: start: 2007
  3. HUMULIN NOS [Concomitant]
     Active Substance: INSULIN HUMAN
     Indication: DIABETES MELLITUS
     Dosage: UNK
     Route: 048
     Dates: start: 201406
  4. LOSARTAN [Concomitant]
     Active Substance: LOSARTAN
     Dosage: 1 DF, QD
     Route: 048
     Dates: start: 2011

REACTIONS (20)
  - Fatigue [Recovering/Resolving]
  - Pruritus generalised [Recovered/Resolved]
  - Feeling cold [Not Recovered/Not Resolved]
  - Abdominal distension [None]
  - Diarrhoea [Not Recovered/Not Resolved]
  - Ascites [Recovered/Resolved]
  - Skin exfoliation [Recovered/Resolved]
  - Skin discolouration [Recovered/Resolved]
  - Dysentery [Recovered/Resolved]
  - Constipation [Recovered/Resolved]
  - Epistaxis [Recovered/Resolved]
  - Decreased appetite [Not Recovered/Not Resolved]
  - Abdominal cavity drainage [None]
  - Peripheral swelling [Not Recovered/Not Resolved]
  - Swelling face [Not Recovered/Not Resolved]
  - Vomiting [Recovered/Resolved]
  - Dry skin [Not Recovered/Not Resolved]
  - Food aversion [Not Recovered/Not Resolved]
  - Asthenia [Recovering/Resolving]
  - Skin wound [Not Recovered/Not Resolved]

NARRATIVE: CASE EVENT DATE: 2014
